FAERS Safety Report 18580189 (Version 1)
Quarter: 2020Q4

REPORT INFORMATION
  Report Type: Spontaneous
  Country: CA (occurrence: CA)
  Receive Date: 20201204
  Receipt Date: 20201204
  Transmission Date: 20210114
  Serious: Yes (Life-Threatening, Other)
  Sender: FDA-Public Use
  Company Number: CA-SA-2020SA346030

PATIENT

DRUGS (8)
  1. ATORVASTATIN [Concomitant]
     Active Substance: ATORVASTATIN
  2. LANTUS [Concomitant]
     Active Substance: INSULIN GLARGINE
  3. CODEINE [Concomitant]
     Active Substance: CODEINE
  4. HUMULIN R [Concomitant]
     Active Substance: INSULIN HUMAN
  5. DOCETAXEL. [Suspect]
     Active Substance: DOCETAXEL
     Indication: NEOPLASM MALIGNANT
     Dosage: 126 MG, Q3W
     Route: 041
  6. GRAVOL [Concomitant]
     Active Substance: DIMENHYDRINATE
  7. DEXAMETHASONE. [Concomitant]
     Active Substance: DEXAMETHASONE
  8. GRASTOFIL [Concomitant]
     Active Substance: FILGRASTIM

REACTIONS (7)
  - Chest discomfort [Recovered/Resolved]
  - Oxygen saturation decreased [Recovered/Resolved]
  - Hypotension [Recovered/Resolved]
  - Vomiting [Recovered/Resolved]
  - Back pain [Recovered/Resolved]
  - Blood pressure systolic decreased [Recovered/Resolved]
  - Nausea [Recovered/Resolved]
